FAERS Safety Report 24270938 (Version 1)
Quarter: 2024Q3

REPORT INFORMATION
  Report Type: Spontaneous
  Country: CA (occurrence: CA)
  Receive Date: 20240831
  Receipt Date: 20240831
  Transmission Date: 20241016
  Serious: Yes (Other)
  Sender: AUROBINDO
  Company Number: CA-AUROBINDO-AUR-APL-2024-042689

PATIENT
  Age: 86 Year
  Sex: Male

DRUGS (2)
  1. PRAVASTATIN [Suspect]
     Active Substance: PRAVASTATIN
     Indication: Product used for unknown indication
     Dosage: 40 MILLIGRAM, ONCE A DAY
     Route: 065
  2. EZETIMIBE [Suspect]
     Active Substance: EZETIMIBE
     Indication: Product used for unknown indication
     Dosage: 10 MILLIGRAM, ONCE A DAY
     Route: 065

REACTIONS (1)
  - Myocardial infarction [Unknown]
